FAERS Safety Report 20518452 (Version 1)
Quarter: 2022Q1

REPORT INFORMATION
  Report Type: Spontaneous
  Country: US (occurrence: US)
  Receive Date: 20220225
  Receipt Date: 20220225
  Transmission Date: 20220423
  Serious: No
  Sender: FDA-Public Use
  Company Number: US-SANOFI-00730117

PATIENT
  Age: 63 Year
  Sex: Female

DRUGS (4)
  1. DUPIXENT [Suspect]
     Active Substance: DUPILUMAB
     Indication: Dermatitis atopic
     Dosage: 600 MG, 1X
     Route: 058
     Dates: start: 20210812, end: 20210812
  2. DUPIXENT [Suspect]
     Active Substance: DUPILUMAB
     Dosage: 300 MG, QOW
     Route: 058
  3. BENADRYL [Concomitant]
     Active Substance: DIPHENHYDRAMINE HYDROCHLORIDE
     Dosage: UNK
  4. NOLIX [Concomitant]
     Active Substance: FLURANDRENOLIDE
     Dosage: UNK

REACTIONS (13)
  - Bronchitis [Not Recovered/Not Resolved]
  - Mechanical urticaria [Unknown]
  - Inflammation [Recovered/Resolved]
  - Pruritus [Unknown]
  - Scratch [Unknown]
  - Pain [Unknown]
  - Middle insomnia [Recovered/Resolved]
  - Road traffic accident [Unknown]
  - Therapeutic response shortened [Unknown]
  - Back pain [Unknown]
  - Muscle strain [Unknown]
  - Off label use [Unknown]
  - Dermatitis atopic [Unknown]

NARRATIVE: CASE EVENT DATE: 20210801
